FAERS Safety Report 10195266 (Version 2)
Quarter: 2014Q2

REPORT INFORMATION
  Report Type: Spontaneous
  Country: BE (occurrence: BE)
  Receive Date: 20140526
  Receipt Date: 20140526
  Transmission Date: 20141212
  Serious: Yes (Other)
  Sender: FDA-Public Use
  Company Number: BE-BRISTOL-MYERS SQUIBB COMPANY-20091229

PATIENT
  Age: 95 Year
  Sex: Female
  Weight: 85 kg

DRUGS (6)
  1. ELIQUIS [Suspect]
     Indication: CEREBROVASCULAR ACCIDENT PROPHYLAXIS
     Dates: start: 201311, end: 20140106
  2. MINIDIAB [Concomitant]
  3. PRETERAX [Concomitant]
  4. EMCONCOR [Concomitant]
  5. ELTHYRONE [Concomitant]
  6. RISPERIDONE [Concomitant]

REACTIONS (3)
  - Gastrointestinal haemorrhage [Recovered/Resolved]
  - Haemoglobin decreased [Unknown]
  - Gastritis [Unknown]
